FAERS Safety Report 13399222 (Version 1)
Quarter: 2017Q2

REPORT INFORMATION
  Report Type: Spontaneous
  Country: SG (occurrence: SG)
  Receive Date: 20170404
  Receipt Date: 20170404
  Transmission Date: 20170830
  Serious: Yes (Hospitalization, Other)
  Sender: FDA-Public Use
  Company Number: SG-ENDO PHARMACEUTICALS INC-2017-001581

PATIENT

DRUGS (2)
  1. AMITRIPTYLINE HCL [Suspect]
     Active Substance: AMITRIPTYLINE
     Indication: PRODUCT USED FOR UNKNOWN INDICATION
     Dosage: 20 DF, UNKNOWN
     Route: 048
  2. NITRAZEPAM [Suspect]
     Active Substance: NITRAZEPAM
     Indication: PRODUCT USED FOR UNKNOWN INDICATION
     Dosage: UNK UNK, UNKNOWN
     Route: 065

REACTIONS (6)
  - Overdose [Unknown]
  - Hypotension [Recovered/Resolved]
  - Cardiac arrest [Recovered/Resolved]
  - Ventricular fibrillation [Recovered/Resolved]
  - Areflexia [Recovered/Resolved]
  - Suicide attempt [Unknown]
